FAERS Safety Report 5069926-2 (Version None)
Quarter: 2006Q3

REPORT INFORMATION
  Report Type: 
  Country: None (occurrence: None)
  Receive Date: 20060731
  Receipt Date: 20060720
  Transmission Date: 20061208
  Serious: Yes (Hospitalization)
  Sender: FDA-Public Use
  Company Number: 2006090169

PATIENT
  Sex: Male

DRUGS (5)
  1. ATORVASTATIN CALCIUM [Suspect]
     Indication: DYSLIPIDAEMIA
     Dosage: 40 MG (20 MG, 2 IN 1 D), ORAL
     Route: 048
     Dates: start: 20040101
  2. CARVEDILOL [Concomitant]
  3. MONOCORDIL (ISOSORBIDE MONONITRATE) [Concomitant]
  4. CAPTOPRIL [Concomitant]
  5. ASPIRIN [Concomitant]

REACTIONS (7)
  - ANGIOPATHY [None]
  - BACK PAIN [None]
  - DYSPNOEA [None]
  - EPISTAXIS [None]
  - HAEMORRHAGE [None]
  - HYPERAESTHESIA [None]
  - MYOCARDIAL INFARCTION [None]
